FAERS Safety Report 16046294 (Version 2)
Quarter: 2019Q2

REPORT INFORMATION
  Report Type: Spontaneous
  Country: US (occurrence: US)
  Receive Date: 20190307
  Receipt Date: 20190507
  Transmission Date: 20190711
  Serious: No
  Sender: FDA-Public Use
  Company Number: US-LEADING PHARMA, LLC-2063648

PATIENT
  Age: 67 Year
  Sex: Female

DRUGS (1)
  1. FUROSEMIDE TABLETS , 20 MG, 40 MG AND 80 MG [Suspect]
     Active Substance: FUROSEMIDE
     Route: 048

REACTIONS (14)
  - Pain in extremity [Not Recovered/Not Resolved]
  - Gingival pain [Not Recovered/Not Resolved]
  - Hypomagnesaemia [Recovered/Resolved]
  - Urinary incontinence [Not Recovered/Not Resolved]
  - Vulval disorder [Recovered/Resolved]
  - Pain of skin [None]
  - Rhinitis [Recovered/Resolved]
  - Neuralgia [Not Recovered/Not Resolved]
  - Swelling face [Recovered/Resolved]
  - Vascular pain [Not Recovered/Not Resolved]
  - Lip swelling [None]
  - Skin discolouration [Not Recovered/Not Resolved]
  - Hypokalaemia [None]
  - Unevaluable event [Recovered/Resolved]
